FAERS Safety Report 23387464 (Version 1)
Quarter: 2024Q1

REPORT INFORMATION
  Report Type: Spontaneous
  Country: US (occurrence: None)
  Receive Date: 20240109
  Receipt Date: 20240109
  Transmission Date: 20240410
  Serious: Yes (Hospitalization)
  Sender: FDA-Public Use
  Company Number: None

PATIENT
  Age: 5 Year
  Sex: Male

DRUGS (2)
  1. NUWIQ [Suspect]
     Active Substance: ANTIHEMOPHILIC FACTOR, HUMAN RECOMBINANT
     Indication: Factor VIII deficiency
     Dosage: OTHER FREQUENCY : PRN ;?
     Route: 042
     Dates: start: 20221022
  2. NORMAL SALINE FLUSH (10ML) [Concomitant]

REACTIONS (2)
  - Blood urine present [None]
  - Joint microhaemorrhage [None]

NARRATIVE: CASE EVENT DATE: 20231228
